FAERS Safety Report 8999496 (Version 1)
Quarter: 2013Q1

REPORT INFORMATION
  Report Type: Report from Study
  Country: US (occurrence: US)
  Receive Date: 20130103
  Receipt Date: 20130103
  Transmission Date: 20140127
  Serious: Yes (Other)
  Sender: FDA-Public Use
  Company Number: US-BAYER-2012-093931

PATIENT
  Age: 37 Year
  Sex: Male
  Weight: 53.52 kg

DRUGS (9)
  1. BETASERON [Suspect]
     Indication: RELAPSING-REMITTING MULTIPLE SCLEROSIS
     Dosage: UNK
     Dates: start: 20080613
  2. BETASERON [Suspect]
     Indication: RELAPSING-REMITTING MULTIPLE SCLEROSIS
     Dosage: UNK
     Dates: start: 20080907, end: 20090126
  3. BETASERON [Suspect]
     Indication: RELAPSING-REMITTING MULTIPLE SCLEROSIS
     Dosage: UNK
     Dates: start: 20100402, end: 20100503
  4. BETASERON [Suspect]
     Indication: RELAPSING-REMITTING MULTIPLE SCLEROSIS
     Dosage: UNK
     Dates: start: 20100701, end: 20110301
  5. BETASERON [Suspect]
     Indication: RELAPSING-REMITTING MULTIPLE SCLEROSIS
     Dosage: UNK
     Dates: end: 20120415
  6. BETASERON [Suspect]
     Indication: RELAPSING-REMITTING MULTIPLE SCLEROSIS
     Dosage: UNK
     Dates: end: 20120807
  7. BETASERON [Suspect]
     Indication: RELAPSING-REMITTING MULTIPLE SCLEROSIS
     Dosage: 2 MIU, QOD
     Route: 058
     Dates: start: 20120825, end: 20120903
  8. BETASERON [Suspect]
     Indication: RELAPSING-REMITTING MULTIPLE SCLEROSIS
     Dosage: 0.25 MG
     Route: 058
     Dates: end: 20120927
  9. TIZANIDINE [Concomitant]
     Indication: SPASTIC PARALYSIS
     Dosage: 2 MG, TID
     Route: 048
     Dates: start: 20060903

REACTIONS (5)
  - Blood urine present [Recovering/Resolving]
  - Chills [Recovered/Resolved]
  - Diarrhoea [Recovered/Resolved]
  - Jaundice [Recovered/Resolved]
  - Urosepsis [Recovered/Resolved]
